FAERS Safety Report 5664385-0 (Version None)
Quarter: 2008Q1

REPORT INFORMATION
  Report Type: 
  Country: None (occurrence: None)
  Receive Date: 20080314
  Receipt Date: 20080229
  Transmission Date: 20080703
  Serious: Yes (Other)
  Sender: FDA-Public Use
  Company Number: TR-AMGEN-US245257

PATIENT
  Sex: Female

DRUGS (5)
  1. ENBREL [Suspect]
     Indication: RHEUMATOID ARTHRITIS
     Route: 058
     Dates: start: 20040512, end: 20060601
  2. PREDNOL [Concomitant]
     Dosage: 7.5 MG
     Route: 065
  3. LIPANTHYL - SLOW RELEASE [Concomitant]
     Dosage: 1X1
     Route: 065
  4. METHOTREXATE [Concomitant]
     Dosage: 17.5 MG
     Route: 065
  5. RANTUDIL [Concomitant]
     Dosage: 2X1
     Route: 065

REACTIONS (1)
  - MALIGNANT NEOPLASM OF AMPULLA OF VATER [None]
